FAERS Safety Report 12842933 (Version 1)
Quarter: 2016Q4

REPORT INFORMATION
  Report Type: Spontaneous
  Country: US (occurrence: US)
  Receive Date: 20161013
  Receipt Date: 20161013
  Transmission Date: 20170207
  Serious: Yes (Other)
  Sender: FDA-Public Use
  Company Number: US-TARO PHARMACEUTICALS USA.,INC-2016SUN00451

PATIENT
  Age: 67 Year
  Sex: Male

DRUGS (1)
  1. FLUOROURACIL TOPICAL CREAM USP, 5% [Suspect]
     Active Substance: FLUOROURACIL
     Indication: ACTINIC KERATOSIS
     Dosage: UNK UNK, BID
     Route: 061

REACTIONS (1)
  - Squamous cell carcinoma [Recovered/Resolved]
